FAERS Safety Report 25275185 (Version 2)
Quarter: 2025Q2

REPORT INFORMATION
  Report Type: Other
  Country: US (occurrence: US)
  Receive Date: 20250506
  Receipt Date: 20250630
  Transmission Date: 20250717
  Serious: No
  Sender: TRAVERE THERAPEUTICS
  Company Number: US-TRAVERE-2025TVT00551

PATIENT
  Age: 53 Year
  Sex: Male

DRUGS (2)
  1. FILSPARI [Suspect]
     Active Substance: SPARSENTAN
     Indication: IgA nephropathy
     Route: 048
  2. FILSPARI [Suspect]
     Active Substance: SPARSENTAN
     Route: 048
     Dates: start: 20250405

REACTIONS (6)
  - Pain [Unknown]
  - Mental fatigue [Unknown]
  - Fatigue [None]
  - Paraesthesia [Unknown]
  - Bone pain [Unknown]
  - Myalgia [Unknown]

NARRATIVE: CASE EVENT DATE: 20250520
